FAERS Safety Report 10314319 (Version 2)
Quarter: 2014Q3

REPORT INFORMATION
  Report Type: Spontaneous
  Country: US (occurrence: US)
  Receive Date: 20140718
  Receipt Date: 20140718
  Transmission Date: 20150326
  Serious: Yes (Hospitalization, Disabling)
  Sender: FDA-Public Use
  Company Number: US-009507513-2011SP035872

PATIENT
  Sex: Female
  Weight: 95.26 kg

DRUGS (3)
  1. NUVARING [Suspect]
     Active Substance: ETHINYL ESTRADIOL\ETONOGESTREL
     Indication: MUSCLE SPASMS
  2. NUVARING [Suspect]
     Active Substance: ETHINYL ESTRADIOL\ETONOGESTREL
     Indication: MENORRHAGIA
  3. NUVARING [Suspect]
     Active Substance: ETHINYL ESTRADIOL\ETONOGESTREL
     Indication: CONTRACEPTION
     Dates: start: 20060729, end: 20080821

REACTIONS (16)
  - Nerve injury [Not Recovered/Not Resolved]
  - Thrombosis [Not Recovered/Not Resolved]
  - Stress [Unknown]
  - Migraine [Unknown]
  - Dizziness [None]
  - Hypoaesthesia [None]
  - Herpes zoster [None]
  - Peripheral embolism [Not Recovered/Not Resolved]
  - Hypertension [Unknown]
  - Blood cholesterol increased [Unknown]
  - Cellulitis [Unknown]
  - Respiratory tract infection [None]
  - Hypoaesthesia oral [None]
  - Seasonal allergy [Unknown]
  - Depression [None]
  - Hepatic cyst [None]

NARRATIVE: CASE EVENT DATE: 200703
